FAERS Safety Report 26080894 (Version 1)
Quarter: 2025Q4

REPORT INFORMATION
  Report Type: Spontaneous
  Country: US (occurrence: US)
  Receive Date: 20251124
  Receipt Date: 20251124
  Transmission Date: 20260117
  Serious: No
  Sender: JOHNSON AND JOHNSON
  Company Number: US-JNJFOC-20251160292

PATIENT
  Age: 58 Year
  Sex: Male

DRUGS (1)
  1. TREMFYA [Suspect]
     Active Substance: GUSELKUMAB
     Indication: Anal fistula
     Route: 065

REACTIONS (5)
  - Infusion related reaction [Unknown]
  - Flushing [Unknown]
  - Hyperhidrosis [Unknown]
  - Paraesthesia oral [Unknown]
  - Off label use [Unknown]

NARRATIVE: CASE EVENT DATE: 20251116
